FAERS Safety Report 5113846-1 (Version None)
Quarter: 2006Q3

REPORT INFORMATION
  Report Type: 
  Country: None (occurrence: None)
  Receive Date: 20060921
  Receipt Date: 20060921
  Transmission Date: 20061208
  Serious: Yes (Life-Threatening)
  Sender: FDA-Public Use
  Company Number: None

PATIENT
  Age: 65 Year
  Sex: Male
  Weight: 84 kg

DRUGS (7)
  1. REOPRO [Suspect]
     Indication: CORONARY ANGIOPLASTY
     Dosage: STANDARD BOLUS AND INFUSION IV
     Route: 042
     Dates: start: 20060718
  2. REOPRO [Suspect]
     Indication: STENT PLACEMENT
     Dosage: STANDARD BOLUS AND INFUSION IV
     Route: 042
     Dates: start: 20060718
  3. ATORVASTATIN [Concomitant]
  4. CLOPIDOGREL [Concomitant]
  5. FUROSEMIDE [Concomitant]
  6. LOSARTAN POSTASSIUM [Concomitant]
  7. PANTOPRAZOLE SODIUM [Concomitant]

REACTIONS (2)
  - ANTI-PLATELET ANTIBODY POSITIVE [None]
  - THROMBOCYTOPENIA [None]
